FAERS Safety Report 22261874 (Version 1)
Quarter: 2023Q2

REPORT INFORMATION
  Report Type: Spontaneous
  Country: RU (occurrence: None)
  Receive Date: 20230428
  Receipt Date: 20230428
  Transmission Date: 20230722
  Serious: Yes (Other)
  Sender: FDA-Public Use
  Company Number: RU-MICRO LABS LIMITED-ML2023-02317

PATIENT
  Age: 75 Year
  Sex: Male

DRUGS (2)
  1. FLUOXETINE [Suspect]
     Active Substance: FLUOXETINE HYDROCHLORIDE
     Indication: Depression
  2. GALANTAMINE [Concomitant]
     Active Substance: GALANTAMINE
     Indication: Dementia Alzheimer^s type

REACTIONS (1)
  - Dementia Alzheimer^s type [Recovering/Resolving]
